FAERS Safety Report 5628475-0 (Version None)
Quarter: 2008Q1

REPORT INFORMATION
  Report Type: 
  Country: None (occurrence: None)
  Receive Date: 20080214
  Receipt Date: 20080214
  Transmission Date: 20080703
  Serious: No
  Sender: FDA-Public Use
  Company Number: None

PATIENT
  Age: 69 Year
  Sex: Male
  Weight: 66.5 kg

DRUGS (2)
  1. HALOPERIDOL [Suspect]
     Indication: SCHIZOAFFECTIVE DISORDER
     Dosage: 1MG OTHER PO
     Route: 048
     Dates: start: 20070731, end: 20070803
  2. OLANZAPINE [Suspect]
     Indication: SCHIZOAFFECTIVE DISORDER
     Dosage: 2.5MG BID PO
     Route: 048
     Dates: start: 20070803, end: 20070805

REACTIONS (5)
  - DEMENTIA [None]
  - DYSTONIA [None]
  - HALLUCINATION [None]
  - TARDIVE DYSKINESIA [None]
  - TREMOR [None]
